FAERS Safety Report 9506967 (Version 1)
Quarter: 2013Q3

REPORT INFORMATION
  Report Type: Spontaneous
  Country: US (occurrence: None)
  Receive Date: 20130905
  Receipt Date: 20130905
  Transmission Date: 20140515
  Serious: Yes (Hospitalization)
  Sender: FDA-Public Use
  Company Number: None

PATIENT
  Age: 61 Year
  Sex: Female
  Weight: 70.7 kg

DRUGS (2)
  1. DAPTOMYCIN [Suspect]
     Indication: PYREXIA
     Dosage: DAPTOMYCIN 450MG IV DAILY
     Route: 042
     Dates: start: 20130720, end: 20130731
  2. DAPTOMYCIN [Suspect]
     Indication: ARTHRITIS BACTERIAL
     Dosage: DAPTOMYCIN 450MG IV DAILY
     Route: 042
     Dates: start: 20130720, end: 20130731

REACTIONS (3)
  - Alveolitis allergic [None]
  - Pyrexia [None]
  - Respiratory depression [None]
